FAERS Safety Report 13705135 (Version 1)
Quarter: 2017Q2

REPORT INFORMATION
  Report Type: Spontaneous
  Country: US (occurrence: US)
  Receive Date: 20170629
  Receipt Date: 20170629
  Transmission Date: 20170830
  Serious: No
  Sender: FDA-Public Use
  Company Number: None

PATIENT
  Age: 24 Year
  Sex: Male
  Weight: 74.25 kg

DRUGS (3)
  1. VIVITROL [Suspect]
     Active Substance: NALTREXONE
     Indication: DRUG USE DISORDER
     Dosage: ?          OTHER FREQUENCY:ONCE A MONTH;OTHER ROUTE:MUSCULAR INJ IN BUTTOCKS?
     Dates: start: 20170628
  2. FISH OIL [Concomitant]
     Active Substance: FISH OIL
  3. MULTIVITAMIN [Concomitant]
     Active Substance: VITAMINS

REACTIONS (8)
  - Depressed mood [None]
  - Anhedonia [None]
  - Insomnia [None]
  - Decreased appetite [None]
  - Disturbance in attention [None]
  - Mood swings [None]
  - Loss of libido [None]
  - Feeling abnormal [None]

NARRATIVE: CASE EVENT DATE: 20170628
